FAERS Safety Report 19596460 (Version 2)
Quarter: 2021Q3

REPORT INFORMATION
  Report Type: Spontaneous
  Country: US (occurrence: US)
  Receive Date: 20210722
  Receipt Date: 20210802
  Transmission Date: 20211014
  Serious: No
  Sender: FDA-Public Use
  Company Number: US-AMGEN-USASP2021110379

PATIENT
  Age: 55 Year
  Sex: Female

DRUGS (3)
  1. COVID?19 VACCINE [Concomitant]
  2. FLU [Concomitant]
     Active Substance: INFLUENZA VIRUS VACCINE
     Dosage: UNK
     Dates: start: 2020
  3. REPATHA [Suspect]
     Active Substance: EVOLOCUMAB
     Indication: PRODUCT USED FOR UNKNOWN INDICATION
     Dosage: UNK
     Route: 065

REACTIONS (6)
  - Nerve injury [Unknown]
  - Illness [Unknown]
  - Hypoaesthesia [Unknown]
  - Muscle spasms [Unknown]
  - Sensory loss [Unknown]
  - Asthenia [Unknown]

NARRATIVE: CASE EVENT DATE: 2020
